FAERS Safety Report 7777987-2 (Version None)
Quarter: 2011Q3

REPORT INFORMATION
  Report Type: 
  Country: None (occurrence: None)
  Receive Date: 20110926
  Receipt Date: 20110913
  Transmission Date: 20111222
  Serious: No
  Sender: FDA-Public Use
  Company Number: US-BIOGENIDEC-2011BI035406

PATIENT
  Age: 32 Year
  Sex: Female

DRUGS (2)
  1. AVONEX [Suspect]
     Route: 030
     Dates: start: 20110722, end: 20110812
  2. AVONEX [Suspect]
     Indication: MULTIPLE SCLEROSIS
     Route: 030
     Dates: start: 20110819

REACTIONS (5)
  - FATIGUE [None]
  - DIARRHOEA [None]
  - EXPOSURE TO COMMUNICABLE DISEASE [None]
  - PYREXIA [None]
  - INFLUENZA LIKE ILLNESS [None]
